FAERS Safety Report 7028356-4 (Version None)
Quarter: 2010Q4

REPORT INFORMATION
  Report Type: 
  Country: None (occurrence: None)
  Receive Date: 20101005
  Receipt Date: 20100922
  Transmission Date: 20110411
  Serious: Yes (Hospitalization)
  Sender: FDA-Public Use
  Company Number: US-ROCHE-728830

PATIENT
  Sex: Female
  Weight: 81.4 kg

DRUGS (11)
  1. BEVACIZUMAB [Suspect]
     Indication: GLIOBLASTOMA MULTIFORME
     Dosage: DRUG: BEVACIZUMAB 10MG/KG
     Route: 065
  2. CARBOPLATIN [Suspect]
     Indication: GLIOBLASTOMA MULTIFORME
     Dosage: DRUG NAME: CARBOPLATIN AUC-4
     Route: 042
     Dates: start: 20100427, end: 20100701
  3. IRINOTECAN HCL [Suspect]
     Indication: GLIOBLASTOMA MULTIFORME
     Dosage: DRUG NAME: IRINOTECAN 125 MG/M2
     Route: 065
     Dates: start: 20100427, end: 20100701
  4. DEXAMETHASONE [Concomitant]
  5. ENOXAPARIN SODIUM [Concomitant]
  6. LEVETIRACETAM [Concomitant]
  7. ONDANSETRON [Concomitant]
  8. SIMETHICONE [Concomitant]
  9. CALCIUM CARBONATE [Concomitant]
  10. TUMS [Concomitant]
  11. MYLANTA [Concomitant]

REACTIONS (2)
  - FEBRILE NEUTROPENIA [None]
  - HAEMOGLOBIN [None]
